FAERS Safety Report 4883468-6 (Version None)
Quarter: 2006Q1

REPORT INFORMATION
  Report Type: 
  Country: None (occurrence: None)
  Receive Date: 20060113
  Receipt Date: 20060103
  Transmission Date: 20060701
  Serious: Yes (Hospitalization)
  Sender: FDA-Public Use
  Company Number: 2006002311

PATIENT
  Age: 72 Year
  Sex: Female

DRUGS (7)
  1. FRAGMIN [Suspect]
     Indication: THROMBOSIS PROPHYLAXIS
     Dosage: 2500 I.U. (1 IN 1 D), SUBCUTANEOUS
     Route: 058
     Dates: start: 20051103, end: 20051122
  2. DAFLON (DIOSMIN) [Concomitant]
  3. DICLOBENE (DICLOFENAC SODIUM) [Concomitant]
  4. MAGNOSOLV              (MAGNESIUM CARBONATE, MAGNESIUM OXIDE) [Concomitant]
  5. METOPROLOL (METOPROLOL) [Concomitant]
  6. LANSOPRAZOLE [Concomitant]
  7. FOSAMAX [Concomitant]

REACTIONS (2)
  - DEEP VEIN THROMBOSIS [None]
  - PULMONARY EMBOLISM [None]
